FAERS Safety Report 22197554 (Version 2)
Quarter: 2023Q2

REPORT INFORMATION
  Report Type: Spontaneous
  Country: AT (occurrence: AT)
  Receive Date: 20230411
  Receipt Date: 20230428
  Transmission Date: 20230722
  Serious: Yes (Other)
  Sender: FDA-Public Use
  Company Number: AT-002147023-NVSC2023AT073519

PATIENT
  Sex: Female

DRUGS (4)
  1. LETROZOLE [Suspect]
     Active Substance: LETROZOLE
     Indication: Ovarian cancer recurrent
     Dosage: UNK
     Route: 065
     Dates: start: 202002
  2. LETROZOLE [Suspect]
     Active Substance: LETROZOLE
     Indication: Metastases to peritoneum
  3. LETROZOLE [Suspect]
     Active Substance: LETROZOLE
     Indication: Ovarian cancer
  4. BEVACIZUMAB [Concomitant]
     Active Substance: BEVACIZUMAB
     Indication: Ovarian cancer
     Dosage: UNK
     Route: 065
     Dates: start: 202002

REACTIONS (6)
  - Ovarian cancer recurrent [Unknown]
  - Metastases to peritoneum [Unknown]
  - Malignant neoplasm progression [Unknown]
  - Acne [Unknown]
  - Product use in unapproved indication [Unknown]
  - Off label use [Unknown]

NARRATIVE: CASE EVENT DATE: 20200201
